FAERS Safety Report 12262072 (Version 3)
Quarter: 2016Q2

REPORT INFORMATION
  Report Type: Spontaneous
  Country: US (occurrence: US)
  Receive Date: 20160413
  Receipt Date: 20160627
  Transmission Date: 20160815
  Serious: No
  Sender: FDA-Public Use
  Company Number: US-GLAXOSMITHKLINE-US2016043637

PATIENT
  Sex: Female

DRUGS (3)
  1. TUDORZA PRESSAIR [Concomitant]
     Active Substance: ACLIDINIUM BROMIDE
  2. INCRUSE ELLIPTA [Suspect]
     Active Substance: UMECLIDINIUM BROMIDE
     Indication: PRODUCT USED FOR UNKNOWN INDICATION
     Dosage: 1 PUFF(S), U
     Route: 055
  3. SPIRIVA [Concomitant]
     Active Substance: TIOTROPIUM BROMIDE MONOHYDRATE

REACTIONS (6)
  - Ill-defined disorder [Unknown]
  - Oral mucosal exfoliation [Unknown]
  - Dyspnoea [Unknown]
  - Oral mucosal blistering [Unknown]
  - Lip disorder [Unknown]
  - Feeling abnormal [Unknown]
